FAERS Safety Report 6591408-7 (Version None)
Quarter: 2010Q1

REPORT INFORMATION
  Report Type: 
  Country: None (occurrence: None)
  Receive Date: 20100219
  Receipt Date: 20100209
  Transmission Date: 20100710
  Serious: Yes (Death)
  Sender: FDA-Public Use
  Company Number: ES-WATSON-2010-01664

PATIENT
  Age: 59 Year
  Sex: Female

DRUGS (3)
  1. PREDNISONE TAB [Suspect]
     Indication: DERMATOMYOSITIS
     Dosage: 50 MG, DAILY
     Dates: start: 20050101
  2. MYCOPHENOLATE MOFETIL [Suspect]
     Indication: DERMATOMYOSITIS
     Dosage: 1 G, Q8H
     Dates: start: 20050101
  3. TACROLIMUS [Suspect]
     Indication: DERMATOMYOSITIS
     Dosage: 2 MG, BID

REACTIONS (4)
  - EPSTEIN-BARR VIRUS ASSOCIATED LYMPHOPROLIFERATIVE DISORDER [None]
  - HEPATIC FAILURE [None]
  - LYMPHOMA [None]
  - STAPHYLOCOCCAL SEPSIS [None]
